FAERS Safety Report 15289716 (Version 1)
Quarter: 2018Q3

REPORT INFORMATION
  Report Type: Spontaneous
  Country: US (occurrence: US)
  Receive Date: 20180817
  Receipt Date: 20180817
  Transmission Date: 20181010
  Serious: No
  Sender: FDA-Public Use
  Company Number: US-MYLANLABS-2018M1060452

PATIENT
  Sex: Female
  Weight: 70 kg

DRUGS (1)
  1. ESTRADIOL TRANSDERMAL SYSTEM [Suspect]
     Active Substance: ESTRADIOL
     Indication: HORMONE REPLACEMENT THERAPY
     Dosage: UNK UNK, QW

REACTIONS (5)
  - Drug effect variable [Unknown]
  - Product adhesion issue [Unknown]
  - Drug dose omission [Recovered/Resolved]
  - Application site hypersensitivity [Recovered/Resolved]
  - Migraine [Recovered/Resolved]
